FAERS Safety Report 8306402-5 (Version None)
Quarter: 2012Q2

REPORT INFORMATION
  Report Type: 
  Country: None (occurrence: None)
  Receive Date: 20120423
  Receipt Date: 20120413
  Transmission Date: 20120825
  Serious: Yes (Hospitalization, Other)
  Sender: FDA-Public Use
  Company Number: US-ELI_LILLY_AND_COMPANY-US201204005572

PATIENT
  Sex: Female

DRUGS (2)
  1. HUMALOG [Suspect]
     Indication: DIABETES MELLITUS
     Dosage: 15 U, WITH EACH MEAL
     Dates: start: 19970101
  2. HUMALOG [Suspect]
     Dosage: 15 U, WITH EACH MEAL
     Dates: start: 19970101

REACTIONS (6)
  - MACULAR DEGENERATION [None]
  - RENAL TRANSPLANT [None]
  - GLAUCOMA [None]
  - PANCREAS TRANSPLANT REJECTION [None]
  - PANCREAS TRANSPLANT [None]
  - VISUAL IMPAIRMENT [None]
